FAERS Safety Report 4743899-1 (Version None)
Quarter: 2005Q3

REPORT INFORMATION
  Report Type: 
  Country: None (occurrence: None)
  Receive Date: 20050809
  Receipt Date: 20050803
  Transmission Date: 20060218
  Serious: Yes (Life-Threatening, Hospitalization)
  Sender: FDA-Public Use
  Company Number: DEWYE883204AUG05

PATIENT
  Age: 26 Year
  Sex: Male

DRUGS (5)
  1. TREVILOR RETARD (VENLAFAXINE HYDROCHLORIDE, CAPSULE, EXTENDED RELEASE, [Suspect]
     Dosage: 40 CAPSULES (OVERDOSE AMOUNT 3000MG)
     Route: 048
     Dates: start: 20050803, end: 20050803
  2. AMOXICILLIN [Suspect]
     Route: 048
     Dates: start: 20050803, end: 20050803
  3. DOMINAL FORTE (PROTHIPENDYL HYDROCHLORIDE, , ) [Suspect]
     Dosage: SEE IMAGE
     Route: 048
     Dates: start: 20050803, end: 20050803
  4. MARCUMAR [Suspect]
     Route: 048
     Dates: start: 20050803, end: 20050803
  5. ZYPREXA [Suspect]
     Dosage: 40 TABLETS (OVERDOSE AMOUNT 200MG)
     Route: 048
     Dates: start: 20050803, end: 20050803

REACTIONS (4)
  - CARDIAC ARREST [None]
  - INTENTIONAL MISUSE [None]
  - OVERDOSE [None]
  - RESPIRATORY FAILURE [None]
